FAERS Safety Report 20827363 (Version 1)
Quarter: 2022Q2

REPORT INFORMATION
  Report Type: Spontaneous
  Country: US (occurrence: None)
  Receive Date: 20220513
  Receipt Date: 20220513
  Transmission Date: 20220721
  Serious: Yes (Hospitalization)
  Sender: FDA-Public Use
  Company Number: None

PATIENT
  Sex: Male

DRUGS (4)
  1. COPAXONE [Suspect]
     Active Substance: GLATIRAMER ACETATE
     Indication: Multiple sclerosis
     Dosage: INJECT 1 SYRINGE UNDER THE SKIN (SUBCUTANEOUS  INJECTION)  THREE TIMES PER WEEK
     Route: 058
     Dates: start: 20150228
  2. DALFAMPRIDINE [Suspect]
     Active Substance: DALFAMPRIDINE
  3. ALENDRONATE [Concomitant]
     Active Substance: ALENDRONATE SODIUM
  4. DALFAMIPRIDINE ER [Concomitant]

REACTIONS (2)
  - Sepsis [None]
  - Therapy interrupted [None]
